FAERS Safety Report 4315235-6 (Version None)
Quarter: 2004Q1

REPORT INFORMATION
  Report Type: 
  Country: None (occurrence: None)
  Receive Date: 20040311
  Receipt Date: 20040220
  Transmission Date: 20041129
  Serious: Yes (Death, Hospitalization)
  Sender: FDA-Public Use
  Company Number: 200411365US

PATIENT
  Age: 77 Year
  Sex: Male

DRUGS (8)
  1. TAXOTERE [Suspect]
     Indication: NON-SMALL CELL LUNG CANCER
     Route: 042
     Dates: start: 20031124, end: 20040105
  2. CARBOPLATIN [Suspect]
     Indication: NON-SMALL CELL LUNG CANCER
     Dosage: DOSE: AUC 2
     Route: 042
     Dates: start: 20031124, end: 20040105
  3. RADIATION THERAPY [Suspect]
     Indication: NON-SMALL CELL LUNG CANCER
     Dates: start: 20031124, end: 20040115
  4. ASPIRIN [Concomitant]
  5. HYTRIN [Concomitant]
  6. KLOR-CON [Concomitant]
  7. TOPROL-XL [Concomitant]
     Dates: end: 20040213
  8. DIOVAN [Concomitant]
     Dates: end: 20040213

REACTIONS (7)
  - ASTHENIA [None]
  - BLOOD PRESSURE DECREASED [None]
  - DEHYDRATION [None]
  - DISCOMFORT [None]
  - DIZZINESS [None]
  - RADIATION PNEUMONITIS [None]
  - RESPIRATORY FAILURE [None]
